FAERS Safety Report 8960593 (Version 1)
Quarter: 2012Q4

REPORT INFORMATION
  Report Type: Spontaneous
  Country: GB (occurrence: None)
  Receive Date: 20121130
  Receipt Date: 20121130
  Transmission Date: 20130627
  Serious: No
  Sender: FDA-Public Use
  Company Number: TPA2012A09258

PATIENT
  Age: 72 Year
  Sex: Male

DRUGS (1)
  1. ADENURIC [Suspect]
     Indication: GOUT
     Route: 048
     Dates: start: 20120901, end: 20121011

REACTIONS (2)
  - Anaphylactic reaction [None]
  - Swollen tongue [None]
